FAERS Safety Report 4330956-7 (Version None)
Quarter: 2004Q1

REPORT INFORMATION
  Report Type: 
  Country: None (occurrence: None)
  Receive Date: 20040329
  Receipt Date: 20040312
  Transmission Date: 20041129
  Serious: Yes (Hospitalization)
  Sender: FDA-Public Use
  Company Number: 2004-BP-01964BP

PATIENT
  Age: 86 Year
  Sex: Female

DRUGS (3)
  1. CATAPRES-TTS-3 [Suspect]
     Indication: HYPERTENSION
     Dosage: 0.1 MG (2.5 MG, 1 PATCH Q WEEK), TO
     Route: 061
     Dates: start: 20030501
  2. ATENOLOL [Concomitant]
  3. XANAX [Concomitant]

REACTIONS (6)
  - APPLICATION SITE BURNING [None]
  - APPLICATION SITE DERMATITIS [None]
  - APPLICATION SITE PRURITUS [None]
  - BLOOD PRESSURE FLUCTUATION [None]
  - DIZZINESS [None]
  - FALL [None]
